FAERS Safety Report 24444724 (Version 2)
Quarter: 2024Q4

REPORT INFORMATION
  Report Type: Report from Study
  Country: US (occurrence: US)
  Receive Date: 20241016
  Receipt Date: 20241017
  Transmission Date: 20250115
  Serious: No
  Sender: ROCHE
  Company Number: US-ROCHE-3035657

PATIENT
  Age: 31 Year
  Sex: Female

DRUGS (2)
  1. RITUXAN [Suspect]
     Active Substance: RITUXIMAB
     Indication: Optic neuritis
     Dosage: 1000 MG IV DAY 1 AND 15, DOS: 12/AUG//2022, 19/FEB/2022, 04/FEB/2022, 13/AUG/2021, 29/JUL/2021, 25/J
     Route: 041
     Dates: start: 202101
  2. RITUXAN [Suspect]
     Active Substance: RITUXIMAB
     Indication: Neuromyelitis optica spectrum disorder

REACTIONS (2)
  - Off label use [Unknown]
  - No adverse event [Unknown]
